FAERS Safety Report 4825423-8 (Version None)
Quarter: 2005Q4

REPORT INFORMATION
  Report Type: 
  Country: None (occurrence: None)
  Receive Date: 20051111
  Receipt Date: 20050803
  Transmission Date: 20060501
  Serious: Yes (Hospitalization)
  Sender: FDA-Public Use
  Company Number: US-MERCK-0508USA01271

PATIENT
  Sex: Male
  Weight: 91 kg

DRUGS (13)
  1. VIOXX [Suspect]
     Indication: OSTEOARTHRITIS
     Route: 048
     Dates: start: 20020917, end: 20040502
  2. PREVACID [Concomitant]
     Route: 065
  3. RANITIDINE [Concomitant]
     Route: 065
  4. ALBUTEROL [Concomitant]
     Indication: ASTHMA
     Route: 065
  5. ATROVENT [Concomitant]
     Route: 065
  6. ZITHROMAX [Concomitant]
     Route: 065
  7. HYOSCYAMINE [Concomitant]
     Route: 065
  8. ACETAMINOPHEN AND CODEINE [Concomitant]
     Route: 065
  9. LIPITOR [Concomitant]
     Indication: BLOOD CHOLESTEROL INCREASED
     Route: 065
  10. PROTONIX [Concomitant]
     Route: 065
  11. PLAVIX [Concomitant]
     Indication: CORONARY ARTERY DISEASE
     Route: 065
  12. FOLIC ACID [Concomitant]
     Route: 065
  13. MEPREDNISONE [Concomitant]
     Route: 065

REACTIONS (1)
  - MYOCARDIAL INFARCTION [None]
